FAERS Safety Report 12462769 (Version 1)
Quarter: 2016Q2

REPORT INFORMATION
  Report Type: Spontaneous
  Country: US (occurrence: US)
  Receive Date: 20160614
  Receipt Date: 20160614
  Transmission Date: 20160815
  Serious: No
  Sender: FDA-Public Use
  Company Number: US-JNJFOC-20160506478

PATIENT
  Sex: Male
  Weight: 104.33 kg

DRUGS (10)
  1. ZANAFLEX [Concomitant]
     Active Substance: TIZANIDINE HYDROCHLORIDE
     Indication: MUSCLE RELAXANT THERAPY
     Route: 065
  2. BABY ASPIRIN [Concomitant]
     Active Substance: ASPIRIN
     Route: 065
  3. MULTIVITAMINS [Concomitant]
     Active Substance: VITAMINS
     Route: 065
  4. TRADJENTA [Concomitant]
     Active Substance: LINAGLIPTIN
     Route: 065
  5. CARVEDILOL. [Concomitant]
     Active Substance: CARVEDILOL
     Indication: CARDIAC DISORDER
     Dosage: 1/2 TABLET
     Route: 065
  6. AMBIEN [Concomitant]
     Active Substance: ZOLPIDEM TARTRATE
     Route: 065
  7. CYMBALTA [Concomitant]
     Active Substance: DULOXETINE HYDROCHLORIDE
     Route: 065
  8. INVOKANA [Suspect]
     Active Substance: CANAGLIFLOZIN
     Indication: TYPE 2 DIABETES MELLITUS
     Route: 048
     Dates: start: 201507
  9. COLACE [Concomitant]
     Active Substance: DOCUSATE SODIUM
     Route: 065
  10. GLUCOTROL [Concomitant]
     Active Substance: GLIPIZIDE
     Route: 065

REACTIONS (3)
  - Blood calcium increased [Unknown]
  - Blood glucose increased [Unknown]
  - Blood cholesterol increased [Unknown]
